FAERS Safety Report 5754384-2 (Version None)
Quarter: 2008Q2

REPORT INFORMATION
  Report Type: 
  Country: None (occurrence: None)
  Receive Date: 20080530
  Receipt Date: 20080520
  Transmission Date: 20081010
  Serious: Yes (Hospitalization)
  Sender: FDA-Public Use
  Company Number: FR-PFIZER INC-2008034931

PATIENT
  Sex: Female
  Weight: 76 kg

DRUGS (12)
  1. LYRICA [Suspect]
     Indication: PAIN
     Route: 048
  2. LYRICA [Suspect]
     Indication: CERVICAL ROOT PAIN
  3. METHOTREXATE [Concomitant]
     Route: 048
  4. ALDACTONE [Concomitant]
     Route: 048
  5. CORTANCYL [Concomitant]
     Route: 048
  6. ENALAPRIL MALEATE AND HYDROCHLOROTHIAZIDE [Concomitant]
     Route: 048
  7. SKENAN [Concomitant]
     Route: 048
  8. ASPEGIC 1000 [Concomitant]
     Route: 048
  9. CORDARONE [Concomitant]
     Route: 048
  10. AMYCOR [Concomitant]
  11. RIVOTRIL [Concomitant]
  12. AMITRIPTYLINE HCL [Concomitant]

REACTIONS (3)
  - COUGH [None]
  - DYSPNOEA [None]
  - PULMONARY CONGESTION [None]
